FAERS Safety Report 24791782 (Version 1)
Quarter: 2024Q4

REPORT INFORMATION
  Report Type: Spontaneous
  Country: US (occurrence: US)
  Receive Date: 20241231
  Receipt Date: 20241231
  Transmission Date: 20250115
  Serious: Yes (Hospitalization, Other)
  Sender: Haleon PLC
  Company Number: US-HALEON-2218949

PATIENT
  Age: 58 Year
  Sex: Female

DRUGS (1)
  1. ACETAMINOPHEN [Suspect]
     Active Substance: ACETAMINOPHEN
     Indication: Product used for unknown indication

REACTIONS (9)
  - Abdominal pain [Unknown]
  - Overdose [Unknown]
  - Asthenia [Unknown]
  - Jaundice [Unknown]
  - Acute myocardial infarction [Unknown]
  - Anaemia [Unknown]
  - Acute respiratory failure [Unknown]
  - Toxicity to various agents [Unknown]
  - Gallbladder enlargement [Unknown]
